FAERS Safety Report 13952863 (Version 1)
Quarter: 2017Q3

REPORT INFORMATION
  Report Type: Spontaneous
  Country: US (occurrence: US)
  Receive Date: 20170911
  Receipt Date: 20170911
  Transmission Date: 20171128
  Serious: Yes (Other)
  Sender: FDA-Public Use
  Company Number: US-TEVA-761692USA

PATIENT
  Age: 80 Year
  Sex: Female

DRUGS (1)
  1. FENTANYL. [Suspect]
     Active Substance: FENTANYL
     Route: 062
     Dates: start: 201701

REACTIONS (4)
  - Cancer pain [Not Recovered/Not Resolved]
  - Muscle spasms [Unknown]
  - Drug effect incomplete [Unknown]
  - Nausea [Not Recovered/Not Resolved]

NARRATIVE: CASE EVENT DATE: 201702
